FAERS Safety Report 25482882 (Version 1)
Quarter: 2025Q2

REPORT INFORMATION
  Report Type: Spontaneous
  Country: IT (occurrence: IT)
  Receive Date: 20250626
  Receipt Date: 20250626
  Transmission Date: 20250717
  Serious: Yes (Other)
  Sender: AUROBINDO
  Company Number: IT-MYLANLABS-2021M1010848

PATIENT
  Age: 73 Year
  Sex: Male

DRUGS (11)
  1. ALPRAZOLAM [Suspect]
     Active Substance: ALPRAZOLAM
     Indication: Depression
     Dosage: UNK UNK, 3 TIMES A DAY (5 DROPS 3 TIMES A DAY)
     Route: 065
  2. ESCITALOPRAM [Suspect]
     Active Substance: ESCITALOPRAM OXALATE
     Indication: Depression
     Dosage: 10 MILLIGRAM, QD
     Route: 065
  3. DELORAZEPAM [Suspect]
     Active Substance: DELORAZEPAM
     Indication: Depression
     Route: 065
  4. RASAGILINE MESYLATE [Suspect]
     Active Substance: RASAGILINE MESYLATE
     Indication: Parkinson^s disease
     Dosage: 1 MILLIGRAM, QD
     Route: 065
  5. PRAMIPEXOLE [Suspect]
     Active Substance: PRAMIPEXOLE
     Indication: Parkinson^s disease
     Route: 065
  6. MELEVODOPA [Suspect]
     Active Substance: MELEVODOPA
     Indication: Parkinson^s disease
     Dosage: 100 MILLIGRAM, BID
     Route: 065
  7. CARBIDOPA\LEVODOPA [Concomitant]
     Active Substance: CARBIDOPA\LEVODOPA
     Indication: Parkinson^s disease
     Route: 065
  8. CARBIDOPA\LEVODOPA [Concomitant]
     Active Substance: CARBIDOPA\LEVODOPA
     Dosage: 1 DOSAGE FORM, FOUR TIMES/DAY (1 TABLET 4 TIMES/DAY)
     Route: 065
  9. CARBIDOPA\LEVODOPA [Concomitant]
     Active Substance: CARBIDOPA\LEVODOPA
     Dosage: 100 MILLIGRAM, TWO TIMES A DAY
     Route: 065
  10. VORTIOXETINE [Concomitant]
     Active Substance: VORTIOXETINE
     Indication: Depression
     Route: 065
  11. VORTIOXETINE [Concomitant]
     Active Substance: VORTIOXETINE
     Route: 065

REACTIONS (1)
  - Drug ineffective [Unknown]
